FAERS Safety Report 5843765-4 (Version None)
Quarter: 2008Q3

REPORT INFORMATION
  Report Type: 
  Country: None (occurrence: None)
  Receive Date: 20080813
  Receipt Date: 20080807
  Transmission Date: 20090109
  Serious: Yes (Hospitalization)
  Sender: FDA-Public Use
  Company Number: US-BRISTOL-MYERS SQUIBB COMPANY-14293476

PATIENT
  Age: 70 Year
  Sex: Male
  Weight: 88 kg

DRUGS (5)
  1. CISPLATIN [Suspect]
     Indication: LARYNGEAL CANCER
     Dosage: START DATE 07APR08. START DATE OF COURSE ASSOCIATED WITH REPORT 28APR08. 100 MG/M2 ON DAYS 1 AND 22
     Dates: start: 20080428, end: 20080428
  2. RADIATION THERAPY [Suspect]
     Indication: LARYNGEAL CANCER
     Dosage: 1 DOSAGEFORM = 70 GY. NUMBER OF FRACTIONS 35. NIMBER OF ELASPSED DAYS 39. START DATE 07APR08
     Dates: start: 20080516, end: 20080516
  3. METHADONE HCL [Concomitant]
     Indication: BREAKTHROUGH PAIN
  4. LORTAB [Concomitant]
     Indication: BREAKTHROUGH PAIN
  5. FENTANYL TRANSDERMAL SYSTEM [Concomitant]
     Indication: BREAKTHROUGH PAIN

REACTIONS (9)
  - ALANINE AMINOTRANSFERASE INCREASED [None]
  - ASPARTATE AMINOTRANSFERASE INCREASED [None]
  - BLOOD POTASSIUM INCREASED [None]
  - DEHYDRATION [None]
  - HYPOXIA [None]
  - INFECTION [None]
  - PNEUMONIA [None]
  - SOMNOLENCE [None]
  - UNRESPONSIVE TO STIMULI [None]
